FAERS Safety Report 22292197 (Version 2)
Quarter: 2025Q2

REPORT INFORMATION
  Report Type: Report from Study
  Country: US (occurrence: US)
  Receive Date: 20230508
  Receipt Date: 20250408
  Transmission Date: 20250717
  Serious: No
  Sender: NOVARTIS
  Company Number: US-002147023-NVSC2023US098578

PATIENT
  Sex: Female

DRUGS (7)
  1. COSENTYX [Suspect]
     Active Substance: SECUKINUMAB
     Indication: Product used for unknown indication
     Route: 065
  2. TRIAMCINOLONE [Suspect]
     Active Substance: TRIAMCINOLONE
     Indication: Psoriasis
     Route: 065
  3. CLOBETASOL [Suspect]
     Active Substance: CLOBETASOL
     Indication: Psoriasis
     Route: 065
  4. KETOCONAZOLE [Suspect]
     Active Substance: KETOCONAZOLE
     Indication: Psoriasis
     Route: 065
  5. CALCIPOTRIENE [Suspect]
     Active Substance: CALCIPOTRIENE
     Indication: Psoriasis
     Route: 065
  6. Gelmicin [Concomitant]
     Indication: Product used for unknown indication
     Route: 065
  7. HUMIRA [Concomitant]
     Active Substance: ADALIMUMAB
     Indication: Product used for unknown indication
     Route: 065
     Dates: end: 202201

REACTIONS (4)
  - Psoriasis [Unknown]
  - Maternal exposure during pregnancy [Unknown]
  - Drug ineffective [Unknown]
  - Product use in unapproved indication [Unknown]
